FAERS Safety Report 9793167 (Version 1)
Quarter: 2014Q1

REPORT INFORMATION
  Report Type: Spontaneous
  Country: CH (occurrence: CH)
  Receive Date: 20140102
  Receipt Date: 20140102
  Transmission Date: 20141002
  Serious: Yes (Other)
  Sender: FDA-Public Use
  Company Number: CH-BRISTOL-MYERS SQUIBB COMPANY-19937168

PATIENT
  Age: 45 Year
  Sex: Male

DRUGS (3)
  1. ETOPOSIDE [Suspect]
     Indication: METASTATIC GLIOMA
  2. CISPLATIN [Suspect]
     Indication: METASTATIC GLIOMA
  3. ADRIAMYCIN [Suspect]
     Indication: METASTATIC GLIOMA

REACTIONS (1)
  - Anxiety [Unknown]
